FAERS Safety Report 15847584 (Version 15)
Quarter: 2024Q3

REPORT INFORMATION
  Report Type: Report from Study
  Country: DE (occurrence: DE)
  Receive Date: 20190121
  Receipt Date: 20240902
  Transmission Date: 20241017
  Serious: Yes (Other)
  Sender: ROCHE
  Company Number: DE-ROCHE-2147123

PATIENT
  Age: 38 Year
  Sex: Female

DRUGS (10)
  1. OCREVUS [Suspect]
     Active Substance: OCRELIZUMAB
     Indication: Relapsing-remitting multiple sclerosis
     Route: 042
     Dates: start: 20180613
  2. OCREVUS [Suspect]
     Active Substance: OCRELIZUMAB
     Route: 042
     Dates: start: 20181214
  3. OCREVUS [Suspect]
     Active Substance: OCRELIZUMAB
     Route: 042
     Dates: start: 20190619
  4. OCREVUS [Suspect]
     Active Substance: OCRELIZUMAB
     Dosage: 3RD MAINTENANCE DOSE
     Route: 042
     Dates: start: 20191209
  5. OCREVUS [Suspect]
     Active Substance: OCRELIZUMAB
     Route: 042
     Dates: start: 20201109
  6. OCREVUS [Suspect]
     Active Substance: OCRELIZUMAB
     Dosage: 217 DAYS, 6TH MAINTENANCE DOSE
     Route: 042
     Dates: start: 20210614
  7. COMIRNATY (TOZINAMERAN) [Suspect]
     Active Substance: TOZINAMERAN
     Indication: Product used for unknown indication
     Route: 065
  8. COMIRNATY (TOZINAMERAN) [Suspect]
     Active Substance: TOZINAMERAN
     Indication: COVID-19 immunisation
     Dosage: DOSE 2, SINGLE
     Route: 065
     Dates: start: 20210506, end: 20210506
  9. CHOLECALCIFEROL [Concomitant]
     Active Substance: CHOLECALCIFEROL
  10. VITAMIN B12 [Concomitant]
     Active Substance: CYANOCOBALAMIN

REACTIONS (22)
  - Palpitations [Recovered/Resolved]
  - Nasopharyngitis [Recovered/Resolved]
  - Menstruation irregular [Recovered/Resolved]
  - B-lymphocyte count decreased [Recovered/Resolved]
  - Osteitis [Recovered/Resolved]
  - Pain in extremity [Recovered/Resolved]
  - Bone pain [Recovered/Resolved]
  - Multiple sclerosis relapse [Recovered/Resolved]
  - Blood pressure decreased [Recovered/Resolved]
  - Blepharitis [Recovered/Resolved]
  - Costochondritis [Recovered/Resolved]
  - Hypotension [Recovered/Resolved]
  - Fatigue [Recovered/Resolved]
  - Dislocation of vertebra [Recovering/Resolving]
  - Cough [Recovered/Resolved]
  - Arthralgia [Recovered/Resolved]
  - Visual impairment [Recovered/Resolved]
  - Sleep disorder [Recovered/Resolved]
  - Multiple sclerosis relapse [Recovered/Resolved]
  - COVID-19 [Recovered/Resolved]
  - Skin discolouration [Unknown]
  - Poor venous access [Unknown]

NARRATIVE: CASE EVENT DATE: 20180613
